FAERS Safety Report 12586244 (Version 1)
Quarter: 2016Q3

REPORT INFORMATION
  Report Type: Spontaneous
  Country: US (occurrence: None)
  Receive Date: 20160722
  Receipt Date: 20160722
  Transmission Date: 20161109
  Serious: No
  Sender: FDA-Public Use
  Company Number: None

PATIENT
  Age: 64 Year
  Sex: Female

DRUGS (3)
  1. REMERON [Suspect]
     Active Substance: MIRTAZAPINE
     Indication: OSTEOPOROSIS
  2. FORTEO [Suspect]
     Active Substance: TERIPARATIDE
     Indication: OSTEOPOROSIS
     Dates: start: 20150701, end: 20160531
  3. TRAZODONE [Suspect]
     Active Substance: TRAZODONE HYDROCHLORIDE

REACTIONS (10)
  - Gastric ulcer [None]
  - Hip arthroplasty [None]
  - Insomnia [None]
  - Rhinorrhoea [None]
  - Bone disorder [None]
  - Drug interaction [None]
  - Dry mouth [None]
  - Lacrimation increased [None]
  - Body height decreased [None]
  - Fall [None]

NARRATIVE: CASE EVENT DATE: 20151101
